FAERS Safety Report 9897115 (Version 1)
Quarter: 2014Q1

REPORT INFORMATION
  Report Type: Spontaneous
  Country: US (occurrence: US)
  Receive Date: 20140214
  Receipt Date: 20140214
  Transmission Date: 20141002
  Serious: Yes (Other)
  Sender: FDA-Public Use
  Company Number: US-ASTRAZENECA-2014SE09230

PATIENT
  Age: 82 Year
  Sex: Male

DRUGS (4)
  1. BRILINTA [Suspect]
     Indication: ACUTE MYOCARDIAL INFARCTION
     Route: 048
  2. BRILINTA [Suspect]
     Indication: CARDIOGENIC SHOCK
     Route: 048
  3. BRILINTA [Suspect]
     Indication: STENT PLACEMENT
     Route: 048
  4. ASPIRIN [Concomitant]

REACTIONS (1)
  - Pulmonary haemorrhage [Recovered/Resolved]
